FAERS Safety Report 18758646 (Version 2)
Quarter: 2021Q1

REPORT INFORMATION
  Report Type: Spontaneous
  Country: US (occurrence: US)
  Receive Date: 20210119
  Receipt Date: 20210122
  Transmission Date: 20210419
  Serious: No
  Sender: FDA-Public Use
  Company Number: US-PFIZER INC-2021025783

PATIENT
  Age: 71 Year
  Sex: Female

DRUGS (1)
  1. ESTRING [Suspect]
     Active Substance: ESTRADIOL
     Indication: BLADDER PROLAPSE
     Dosage: 2 MG
     Route: 067

REACTIONS (3)
  - Alopecia [Unknown]
  - Off label use [Unknown]
  - Drug effective for unapproved indication [Unknown]
